FAERS Safety Report 8436611-6 (Version None)
Quarter: 2012Q2

REPORT INFORMATION
  Report Type: 
  Country: None (occurrence: None)
  Receive Date: 20120323
  Receipt Date: 20110622
  Transmission Date: 20120825
  Serious: Yes (Hospitalization, Other)
  Sender: FDA-Public Use
  Company Number: 163-21880-11063242

PATIENT
  Age: 79 Year
  Sex: Female

DRUGS (3)
  1. ASA (ACETYSALICYLIC ACID0 [Concomitant]
  2. REVLIMID [Suspect]
     Indication: MULTIPLE MYELOMA
     Dosage: 25 MG, 1 IN 1 D, PO 10 MG, DAILY X 28 DAYS, PO
     Route: 048
     Dates: start: 20100901, end: 20110615
  3. REVLIMID [Suspect]
     Indication: MULTIPLE MYELOMA
     Dosage: 25 MG, 1 IN 1 D, PO 10 MG, DAILY X 28 DAYS, PO
     Route: 048
     Dates: start: 20100820

REACTIONS (5)
  - HYPOTENSION [None]
  - CONJUNCTIVITIS INFECTIVE [None]
  - CLOSTRIDIAL INFECTION [None]
  - CYSTITIS [None]
  - SYNCOPE [None]
